FAERS Safety Report 8329693-3 (Version None)
Quarter: 2012Q2

REPORT INFORMATION
  Report Type: 
  Country: None (occurrence: None)
  Receive Date: 20120502
  Receipt Date: 20120425
  Transmission Date: 20120825
  Serious: Yes (Other)
  Sender: FDA-Public Use
  Company Number: US-GLAXOSMITHKLINE-A0976012A

PATIENT
  Age: 53 Year
  Sex: Female

DRUGS (1)
  1. FLOLAN [Suspect]
     Indication: PRODUCT USED FOR UNKNOWN INDICATION
     Dosage: 42NGKM UNKNOWN
     Route: 065
     Dates: start: 20110406

REACTIONS (2)
  - DYSPNOEA [None]
  - HAEMATEMESIS [None]
